FAERS Safety Report 7437742-X (Version None)
Quarter: 2011Q2

REPORT INFORMATION
  Report Type: 
  Country: None (occurrence: None)
  Receive Date: 20110426
  Receipt Date: 20110415
  Transmission Date: 20111010
  Serious: Yes (Hospitalization)
  Sender: FDA-Public Use
  Company Number: NL-ROCHE-769131

PATIENT
  Sex: Female

DRUGS (2)
  1. PACLITAXEL [Suspect]
     Indication: BREAST CANCER METASTATIC
     Dosage: LAST DOSE PRIRO TO SAE ON 04 FEBRUARY 2011. TEMPORARILY DISCONTINUED.
     Route: 042
     Dates: start: 20100903
  2. BEVACIZUMAB [Suspect]
     Indication: BREAST CANCER METASTATIC
     Dosage: LAST DOSE PRIOR TO SAE ON 25 FEBRUARY 2011. PERMANENTLY DISCONTINUED.
     Route: 042
     Dates: start: 20100903

REACTIONS (1)
  - INTRACRANIAL TUMOUR HAEMORRHAGE [None]
